FAERS Safety Report 5407616-4 (Version None)
Quarter: 2007Q3

REPORT INFORMATION
  Report Type: 
  Country: None (occurrence: None)
  Receive Date: 20070807
  Receipt Date: 20070727
  Transmission Date: 20080115
  Serious: Yes (Other)
  Sender: FDA-Public Use
  Company Number: US-PFIZER INC-2007047266

PATIENT
  Sex: Male
  Weight: 104.3 kg

DRUGS (3)
  1. CHANTIX [Suspect]
     Indication: SMOKING CESSATION THERAPY
  2. CISPLATIN [Suspect]
     Indication: NEOPLASM MALIGNANT
  3. NSAID'S [Concomitant]

REACTIONS (9)
  - ABNORMAL DREAMS [None]
  - BIOPSY [None]
  - HYPERHIDROSIS [None]
  - INSOMNIA [None]
  - NERVE INJURY [None]
  - SLEEP TERROR [None]
  - SOMNOLENCE [None]
  - TINNITUS [None]
  - TREMOR [None]
